FAERS Safety Report 4876856-5 (Version None)
Quarter: 2006Q1

REPORT INFORMATION
  Report Type: 
  Country: None (occurrence: None)
  Receive Date: 20060110
  Receipt Date: 20060103
  Transmission Date: 20060701
  Serious: Yes (Hospitalization)
  Sender: FDA-Public Use
  Company Number: 2006CG00016

PATIENT
  Age: 75 Year
  Sex: Male

DRUGS (10)
  1. MOPRAL [Suspect]
     Route: 048
  2. VASTEN [Interacting]
     Route: 048
  3. PLAVIX [Interacting]
     Route: 048
     Dates: start: 20051116, end: 20051118
  4. CALCIPARINE [Interacting]
     Route: 058
     Dates: start: 20051118, end: 20051121
  5. COUMADIN [Interacting]
     Route: 048
     Dates: start: 20051115, end: 20051121
  6. ZESTRIL [Concomitant]
     Route: 048
     Dates: end: 20051121
  7. CARDENSIEL [Concomitant]
  8. VASTAREL [Concomitant]
  9. ALDACTONE [Concomitant]
  10. LASILIX [Concomitant]

REACTIONS (5)
  - ABDOMINAL HAEMATOMA [None]
  - ANAEMIA [None]
  - DRUG INTERACTION [None]
  - EPISTAXIS [None]
  - HAEMATOMA [None]
